FAERS Safety Report 15586567 (Version 2)
Quarter: 2018Q4

REPORT INFORMATION
  Report Type: Report from Study
  Country: None (occurrence: ES)
  Receive Date: 20181105
  Receipt Date: 20181114
  Transmission Date: 20190205
  Serious: Yes (Hospitalization, Other)
  Sender: FDA-Public Use
  Company Number: ES-ABBVIE-18S-144-2541398-00

PATIENT
  Age: 82 Year
  Sex: Male
  Weight: 68 kg

DRUGS (1)
  1. DUODOPA [Suspect]
     Active Substance: CARBIDOPA\LEVODOPA
     Indication: PARKINSON^S DISEASE
     Route: 050
     Dates: start: 20180712, end: 201811

REACTIONS (4)
  - Intracranial pressure increased [Not Recovered/Not Resolved]
  - Blindness [Unknown]
  - Optic neuropathy [Recovering/Resolving]
  - Polyneuropathy chronic [Not Recovered/Not Resolved]

NARRATIVE: CASE EVENT DATE: 2018
